FAERS Safety Report 16216673 (Version 7)
Quarter: 2020Q4

REPORT INFORMATION
  Report Type: Report from Study
  Country: US (occurrence: US)
  Receive Date: 20190419
  Receipt Date: 20201030
  Transmission Date: 20210113
  Serious: Yes (Death, Other)
  Sender: FDA-Public Use
  Company Number: PHEH2019US016084

PATIENT
  Age: 2 Year
  Sex: Female
  Weight: 12.75 kg

DRUGS (7)
  1. LEVOFLOXACIN. [Concomitant]
     Active Substance: LEVOFLOXACIN
     Indication: PRODUCT USED FOR UNKNOWN INDICATION
     Dosage: UNK
     Route: 065
  2. PENTAMIDINE [Concomitant]
     Active Substance: PENTAMIDINE
     Indication: PRODUCT USED FOR UNKNOWN INDICATION
     Dosage: UNK
     Route: 065
  3. KYMRIAH [Suspect]
     Active Substance: TISAGENLECLEUCEL
     Indication: B-CELL TYPE ACUTE LEUKAEMIA
     Dosage: UNK UNK, ONCE/SINGLE
     Route: 041
     Dates: start: 20190404
  4. MICAFUNGIN. [Concomitant]
     Active Substance: MICAFUNGIN SODIUM
     Indication: PRODUCT USED FOR UNKNOWN INDICATION
     Dosage: UNK
     Route: 065
  5. CYCLOPHOSPHAMIDE. [Concomitant]
     Active Substance: CYCLOPHOSPHAMIDE
     Indication: CHEMOTHERAPY
     Route: 065
  6. FLUDARABINE [Concomitant]
     Active Substance: FLUDARABINE PHOSPHATE
     Indication: CHEMOTHERAPY
     Route: 065
  7. ALLOPURINOL. [Concomitant]
     Active Substance: ALLOPURINOL
     Indication: PRODUCT USED FOR UNKNOWN INDICATION
     Dosage: UNK
     Route: 065

REACTIONS (16)
  - Upper respiratory fungal infection [Unknown]
  - Sinusitis [Unknown]
  - Haematocrit decreased [Unknown]
  - White blood cell count increased [Unknown]
  - Cytopenia [Unknown]
  - Drug ineffective [Unknown]
  - Respiratory failure [Fatal]
  - B-cell type acute leukaemia [Fatal]
  - Malignant neoplasm progression [Fatal]
  - Haemoglobin decreased [Unknown]
  - Platelet count decreased [Unknown]
  - Respirovirus test positive [Unknown]
  - Rubulavirus test positive [Unknown]
  - Hypogammaglobulinaemia [Unknown]
  - Fungal infection [Unknown]
  - Treatment failure [Unknown]

NARRATIVE: CASE EVENT DATE: 20190409
